FAERS Safety Report 19829459 (Version 1)
Quarter: 2021Q3

REPORT INFORMATION
  Report Type: Report from Study
  Country: US (occurrence: US)
  Receive Date: 20210914
  Receipt Date: 20210914
  Transmission Date: 20211014
  Serious: Yes (Other)
  Sender: FDA-Public Use
  Company Number: US-ELI_LILLY_AND_COMPANY-US202109002159

PATIENT

DRUGS (3)
  1. GEMCITABINE HYDROCHLORIDE. [Suspect]
     Active Substance: GEMCITABINE HYDROCHLORIDE
     Indication: NEOPLASM
     Dosage: 1000 MG/M2 IV ON DAYS 1/8
     Route: 042
  2. CISPLATIN. [Concomitant]
     Active Substance: CISPLATIN
     Indication: NEOPLASM
     Dosage: 60 MG/M2, DAY 1 CYCLICAL
     Route: 042
  3. CERITINIB [Concomitant]
     Active Substance: CERITINIB
     Indication: NEOPLASM
     Dosage: 450 MG, DAILY
     Route: 048

REACTIONS (1)
  - Acute kidney injury [Unknown]
